FAERS Safety Report 4862358-9 (Version None)
Quarter: 2005Q4

REPORT INFORMATION
  Report Type: 
  Country: None (occurrence: None)
  Receive Date: 20051221
  Receipt Date: 20051209
  Transmission Date: 20060501
  Serious: Yes (Other)
  Sender: FDA-Public Use
  Company Number: CA-BRISTOL-MYERS SQUIBB COMPANY-13219969

PATIENT
  Age: 69 Year
  Sex: Female

DRUGS (13)
  1. TEQUIN [Suspect]
     Route: 048
  2. ASPIRIN [Concomitant]
  3. CALCIUM + VITAMIN D [Concomitant]
  4. COZAAR [Concomitant]
     Route: 048
  5. FLUTICASONE [Concomitant]
     Route: 055
  6. LIPITOR [Concomitant]
     Route: 048
  7. LOSEC [Concomitant]
     Route: 048
  8. METFORMIN HCL [Concomitant]
     Route: 048
  9. METFORMIN HCL [Concomitant]
     Route: 048
  10. NASONEX [Concomitant]
     Route: 055
  11. NIFEDIPINE [Concomitant]
  12. NITROLINGUAL [Concomitant]
  13. VITAMIN B-12 [Concomitant]
     Route: 048

REACTIONS (1)
  - HYPERGLYCAEMIA [None]
